FAERS Safety Report 7170777-3 (Version None)
Quarter: 2010Q4

REPORT INFORMATION
  Report Type: 
  Country: None (occurrence: None)
  Receive Date: 20101206
  Receipt Date: 20101119
  Transmission Date: 20110411
  Serious: Yes (Life-Threatening, Other)
  Sender: FDA-Public Use
  Company Number: US_TT_10_00006

PATIENT
  Sex: Female

DRUGS (3)
  1. DEXRAZOXANE [Suspect]
     Indication: EXTRAVASATION
     Dosage: ONCE DAILY FOR 3 DAYS
     Dates: start: 20101101, end: 20101101
  2. ADRIAMYCIN PFS [Concomitant]
  3. CYCLOPHOSPHAMIDE [Concomitant]

REACTIONS (1)
  - DRUG INEFFECTIVE [None]
